FAERS Safety Report 9130307 (Version 3)
Quarter: 2013Q3

REPORT INFORMATION
  Report Type: Spontaneous
  Country: PR (occurrence: PR)
  Receive Date: 20130228
  Receipt Date: 20130705
  Transmission Date: 20140515
  Serious: Yes (Hospitalization)
  Sender: FDA-Public Use
  Company Number: PR-ABBOTT-13P-131-1054324-00

PATIENT
  Sex: Female
  Weight: 51.76 kg

DRUGS (9)
  1. HUMIRA [Suspect]
     Indication: CROHN^S DISEASE
     Route: 058
     Dates: start: 2008, end: 201301
  2. HUMIRA [Suspect]
     Route: 058
     Dates: start: 201303
  3. AZOFT [Concomitant]
     Indication: GLAUCOMA
     Dosage: 1 DROP BID BILATERAL
     Route: 047
  4. XALATAN [Concomitant]
     Indication: GLAUCOMA
     Dosage: 1 DROP EACH EYE
     Route: 047
  5. ALPHAGAN [Concomitant]
     Indication: GLAUCOMA
     Dosage: EACH EYE
     Route: 047
  6. XANAX [Concomitant]
     Indication: INSOMNIA
     Route: 048
     Dates: start: 201301
  7. PEPCID [Concomitant]
     Indication: GASTRIC DISORDER
     Route: 048
  8. MANGO [Concomitant]
     Indication: BLOOD POTASSIUM
     Route: 048
  9. COLLAGEN [Concomitant]
     Indication: SUPPLEMENTATION THERAPY
     Route: 048

REACTIONS (4)
  - Crohn^s disease [Recovered/Resolved]
  - Flatulence [Unknown]
  - Gastrointestinal pain [Unknown]
  - Pain [Unknown]
